FAERS Safety Report 8124833-3 (Version None)
Quarter: 2012Q1

REPORT INFORMATION
  Report Type: 
  Country: None (occurrence: None)
  Receive Date: 20120209
  Receipt Date: 20120130
  Transmission Date: 20120608
  Serious: Yes (Hospitalization)
  Sender: FDA-Public Use
  Company Number: FR-PFIZER INC-K201000917

PATIENT
  Age: 56 Year
  Sex: Female

DRUGS (7)
  1. LEVOTHYROXINE SODIUM [Concomitant]
     Dosage: UNK
  2. ASPIRIN [Suspect]
     Indication: MYOCARDIAL INFARCTION
     Dosage: 75 MG, UNK
     Route: 048
     Dates: start: 20011001, end: 20090713
  3. COUMADIN [Suspect]
     Dosage: UNK
     Route: 048
     Dates: start: 20011001, end: 20090713
  4. RAMIPRIL [Suspect]
     Dosage: UNK
     Dates: start: 20010101
  5. PANTOPRAZOLE SODIUM [Suspect]
     Dosage: UNK
     Dates: start: 20010101
  6. ATORVASTATIN [Suspect]
     Dosage: UNK
     Dates: start: 20010101
  7. TENORMIN [Concomitant]
     Dosage: UNK

REACTIONS (7)
  - HEADACHE [None]
  - HEMIPARESIS [None]
  - CONVULSION [None]
  - BRAIN OEDEMA [None]
  - HEMIANOPIA [None]
  - APHASIA [None]
  - CEREBRAL HAEMATOMA [None]
